FAERS Safety Report 9999314 (Version 1)
Quarter: 2014Q1

REPORT INFORMATION
  Report Type: Spontaneous
  Country: US (occurrence: None)
  Receive Date: 20140311
  Receipt Date: 20140311
  Transmission Date: 20141002
  Serious: Yes (Other)
  Sender: FDA-Public Use
  Company Number: None

PATIENT
  Age: 75 Year
  Sex: Female
  Weight: 61.24 kg

DRUGS (1)
  1. ALENDRONATE SODIUM [Suspect]
     Indication: BONE LOSS
     Dosage: 70 MG TAKE 1 WEEK 4 TOTAL ?ONE WEEKLY?TAKEN BY MOUTH
     Route: 048
     Dates: start: 20140223

REACTIONS (9)
  - Dizziness [None]
  - Abdominal pain upper [None]
  - Dyspnoea [None]
  - Dysstasia [None]
  - Gait disturbance [None]
  - Balance disorder [None]
  - Hypoaesthesia [None]
  - Hypoaesthesia [None]
  - Fall [None]
